FAERS Safety Report 6212917-6 (Version None)
Quarter: 2009Q2

REPORT INFORMATION
  Report Type: 
  Country: None (occurrence: None)
  Receive Date: 20090603
  Receipt Date: 20090528
  Transmission Date: 20091009
  Serious: Yes (Hospitalization)
  Sender: FDA-Public Use
  Company Number: US-AVENTIS-200913972US

PATIENT
  Sex: Male
  Weight: 87.09 kg

DRUGS (6)
  1. LOVENOX [Suspect]
     Indication: THROMBOSIS PROPHYLAXIS
     Dates: start: 20090418, end: 20090401
  2. WARFARIN [Concomitant]
     Indication: THROMBOSIS PROPHYLAXIS
     Dosage: DOSE: 27MG PER WEEK
     Dates: start: 20040601
  3. FUROSEMIDE [Concomitant]
     Indication: SWELLING
     Dates: start: 20080901
  4. SPIRONOLACTONE [Concomitant]
     Indication: SWELLING
     Dates: start: 20080901
  5. POTASSIUM CHLORIDE [Concomitant]
     Indication: SWELLING
     Dates: start: 20080901
  6. TIZANIDINE HCL [Concomitant]
     Dates: start: 20060101

REACTIONS (4)
  - ASTHENIA [None]
  - CONTUSION [None]
  - HAEMORRHAGE [None]
  - INFECTION [None]
